FAERS Safety Report 24200288 (Version 1)
Quarter: 2024Q3

REPORT INFORMATION
  Report Type: Spontaneous
  Country: ES (occurrence: ES)
  Receive Date: 20240812
  Receipt Date: 20240812
  Transmission Date: 20241017
  Serious: Yes (Other)
  Sender: AUROBINDO
  Company Number: ES-AUROBINDO-AUR-APL-2024-039091

PATIENT
  Age: 3 Year
  Sex: Male

DRUGS (4)
  1. MELPHALAN [Suspect]
     Active Substance: MELPHALAN
     Indication: Retinoblastoma
     Dosage: UNK
     Route: 013
  2. MELPHALAN [Suspect]
     Active Substance: MELPHALAN
     Dosage: UNK
  3. TOPOTECAN [Suspect]
     Active Substance: TOPOTECAN HYDROCHLORIDE
     Indication: Retinoblastoma
     Dosage: UNK
     Route: 065
  4. TOPOTECAN [Suspect]
     Active Substance: TOPOTECAN HYDROCHLORIDE
     Dosage: 20 MICROGRAM (2 CYCLES)

REACTIONS (6)
  - Atrophy of globe [Unknown]
  - Exophthalmos [Unknown]
  - Lenticular pigmentation [Unknown]
  - Retinal haemorrhage [Unknown]
  - Retinopathy [Unknown]
  - Iris discolouration [Unknown]
